FAERS Safety Report 21192316 (Version 1)
Quarter: 2022Q3

REPORT INFORMATION
  Report Type: Report from Study
  Country: DE (occurrence: DE)
  Receive Date: 20220809
  Receipt Date: 20220809
  Transmission Date: 20221026
  Serious: Yes (Hospitalization, Other)
  Sender: FDA-Public Use
  Company Number: DE-002147023-NVSC2022DE172276

PATIENT

DRUGS (18)
  1. RUXOLITINIB [Suspect]
     Active Substance: RUXOLITINIB
     Indication: Primary myelofibrosis
     Dosage: 30 MG, QD
     Route: 048
     Dates: start: 20190906
  2. RUXOLITINIB [Suspect]
     Active Substance: RUXOLITINIB
     Dosage: 35 MG, QD
     Route: 048
     Dates: start: 20191009, end: 20191030
  3. RUXOLITINIB [Suspect]
     Active Substance: RUXOLITINIB
     Dosage: 40 MG, QD
     Route: 048
     Dates: start: 20191017
  4. RUXOLITINIB [Suspect]
     Active Substance: RUXOLITINIB
     Dosage: 45 MG, QD
     Route: 048
     Dates: start: 20191031, end: 20200507
  5. RUXOLITINIB [Suspect]
     Active Substance: RUXOLITINIB
     Dosage: 0 MG, QD
     Route: 048
     Dates: start: 20200508, end: 20200519
  6. RUXOLITINIB [Suspect]
     Active Substance: RUXOLITINIB
     Dosage: 10 MG, QD
     Route: 048
     Dates: start: 20200519, end: 20200609
  7. RUXOLITINIB [Suspect]
     Active Substance: RUXOLITINIB
     Dosage: 5 MG, QD
     Route: 048
     Dates: start: 20200610, end: 20200626
  8. RUXOLITINIB [Suspect]
     Active Substance: RUXOLITINIB
     Dosage: 10 MG, QD
     Route: 048
     Dates: start: 20200627, end: 20200814
  9. RUXOLITINIB [Suspect]
     Active Substance: RUXOLITINIB
     Dosage: 5 MG, QD
     Route: 048
     Dates: start: 20200815, end: 20200910
  10. RUXOLITINIB [Suspect]
     Active Substance: RUXOLITINIB
     Dosage: 10 MG, QD
     Route: 048
     Dates: start: 20200911, end: 20201009
  11. RUXOLITINIB [Suspect]
     Active Substance: RUXOLITINIB
     Dosage: 10 MG, QD
     Route: 048
     Dates: start: 20201010, end: 20201229
  12. RUXOLITINIB [Suspect]
     Active Substance: RUXOLITINIB
     Dosage: 20 MG, QD
     Route: 048
     Dates: start: 20201230, end: 20210129
  13. RUXOLITINIB [Suspect]
     Active Substance: RUXOLITINIB
     Dosage: 30 MG, QD
     Route: 048
     Dates: start: 20210130, end: 20210428
  14. RUXOLITINIB [Suspect]
     Active Substance: RUXOLITINIB
     Dosage: 20 MG, QD
     Route: 048
     Dates: start: 20210429, end: 20210529
  15. RUXOLITINIB [Suspect]
     Active Substance: RUXOLITINIB
     Dosage: 10 MG, QD
     Route: 048
     Dates: start: 20210630, end: 20210928
  16. AZACITIDINE [Concomitant]
     Active Substance: AZACITIDINE
     Indication: Myeloproliferative neoplasm
     Dosage: 75 MG/M2, QD (DUE TO MYELOFIBROSIS)
     Route: 065
     Dates: start: 20200427, end: 20200626
  17. CYTARABINE [Concomitant]
     Active Substance: CYTARABINE
     Indication: Myeloproliferative neoplasm
     Dosage: 100 MG/M2, QD (INTERPRETED AS CYTARABINE] [DUE TO MYELOFIBROSIS])
     Route: 065
     Dates: start: 20210901, end: 20210929
  18. DECITABINE [Concomitant]
     Active Substance: DECITABINE
     Indication: Myeloproliferative neoplasm
     Dosage: 20 MG/M2, QD (DUE TO MYELOFIBROSIS)
     Route: 065
     Dates: start: 20200817, end: 20210831

REACTIONS (4)
  - Acute kidney injury [Recovered/Resolved]
  - Pneumonia [Recovered/Resolved]
  - Pneumonitis [Recovered/Resolved]
  - Splenic infarction [Not Recovered/Not Resolved]

NARRATIVE: CASE EVENT DATE: 20210621
